FAERS Safety Report 6828916-7 (Version None)
Quarter: 2010Q3

REPORT INFORMATION
  Report Type: 
  Country: None (occurrence: None)
  Receive Date: 20100709
  Receipt Date: 20070223
  Transmission Date: 20110219
  Serious: No
  Sender: FDA-Public Use
  Company Number: US-PFIZER INC-2007015875

PATIENT
  Sex: Male
  Weight: 86.18 kg

DRUGS (3)
  1. CHANTIX [Suspect]
     Indication: SMOKING CESSATION THERAPY
     Dates: start: 20060101, end: 20060101
  2. CLOZARIL [Concomitant]
  3. NEXIUM [Concomitant]

REACTIONS (2)
  - NAUSEA [None]
  - VOMITING [None]
